FAERS Safety Report 6873131-4 (Version None)
Quarter: 2010Q3

REPORT INFORMATION
  Report Type: 
  Country: None (occurrence: None)
  Receive Date: 20100723
  Receipt Date: 20090121
  Transmission Date: 20110219
  Serious: No
  Sender: FDA-Public Use
  Company Number: US-PFIZER INC-2008099047

PATIENT
  Sex: Female
  Weight: 64.545 kg

DRUGS (6)
  1. CHANTIX [Suspect]
     Indication: SMOKING CESSATION THERAPY
     Dosage: UNK
     Dates: start: 20080101, end: 20081207
  2. DYAZIDE [Concomitant]
  3. DESVENLAFAXINE [Concomitant]
  4. METOPROLOL SUCCINATE [Concomitant]
     Indication: ARRHYTHMIA
  5. AMBIEN [Concomitant]
     Indication: INSOMNIA
  6. VALIUM [Concomitant]

REACTIONS (3)
  - CONSTIPATION [None]
  - FLATULENCE [None]
  - NAUSEA [None]
